FAERS Safety Report 5781438-7 (Version None)
Quarter: 2008Q2

REPORT INFORMATION
  Report Type: 
  Country: None (occurrence: None)
  Receive Date: 20080623
  Receipt Date: 20071003
  Transmission Date: 20081010
  Serious: No
  Sender: FDA-Public Use
  Company Number: US-ASTRAZENECA-2007UW23067

PATIENT
  Age: 22 Year
  Sex: Male

DRUGS (1)
  1. ENTOCORT EC [Suspect]
     Indication: CROHN'S DISEASE
     Route: 048
     Dates: start: 20070901

REACTIONS (4)
  - HEADACHE [None]
  - NASAL CONGESTION [None]
  - PHARYNGITIS [None]
  - TONGUE DISCOLOURATION [None]
